FAERS Safety Report 16768624 (Version 1)
Quarter: 2019Q3

REPORT INFORMATION
  Report Type: Spontaneous
  Country: US (occurrence: US)
  Receive Date: 20190715
  Receipt Date: 20190715
  Transmission Date: 20191005
  Serious: No
  Sender: FDA-Public Use
  Company Number: None

PATIENT
  Age: 64 Year
  Sex: Female

DRUGS (3)
  1. IBRANCE [Suspect]
     Active Substance: PALBOCICLIB
     Dosage: ?          OTHER FREQUENCY:UNKNOWN;?
     Route: 048
     Dates: start: 201904
  2. FASLODEX [Concomitant]
     Active Substance: FULVESTRANT
     Dates: start: 20190401
  3. ZOMETA [Concomitant]
     Active Substance: ZOLEDRONIC ACID
     Dates: start: 20190401

REACTIONS (2)
  - Vulvovaginal pruritus [None]
  - Hot flush [None]

NARRATIVE: CASE EVENT DATE: 20190715
